FAERS Safety Report 6960799-7 (Version None)
Quarter: 2010Q3

REPORT INFORMATION
  Report Type: 
  Country: None (occurrence: None)
  Receive Date: 20100823
  Receipt Date: 20100708
  Transmission Date: 20110219
  Serious: No
  Sender: FDA-Public Use
  Company Number: 015275

PATIENT
  Sex: Female
  Weight: 77 kg

DRUGS (4)
  1. CIMZIA [Suspect]
     Indication: CROHN'S DISEASE
     Dosage: (400 MG 1X/MONTH SUBCUTANEOUS)
     Route: 058
     Dates: start: 20100401
  2. XIFAXAN [Concomitant]
  3. VITAMIN B12 /00056201/ [Concomitant]
  4. LASIX [Concomitant]

REACTIONS (4)
  - DRUG INEFFECTIVE [None]
  - FATIGUE [None]
  - INSOMNIA [None]
  - MYALGIA [None]
